FAERS Safety Report 21751640 (Version 1)
Quarter: 2022Q4

REPORT INFORMATION
  Report Type: Report from Study
  Country: US (occurrence: US)
  Receive Date: 20221220
  Receipt Date: 20221220
  Transmission Date: 20230112
  Serious: Yes (Other)
  Sender: FDA-Public Use
  Company Number: US-ABBVIE-4241919

PATIENT
  Sex: Male

DRUGS (2)
  1. HUMIRA [Suspect]
     Active Substance: ADALIMUMAB
     Indication: Hidradenitis
     Dosage: FIRST ADMIN DATE: 2022, RESTART 2 WEEKS AGO?CITRATE FREE
     Route: 058
  2. HUMIRA [Suspect]
     Active Substance: ADALIMUMAB
     Dosage: OFF HUMIRA 3 WEEKS?CITRATE FREE
     Route: 058
     Dates: end: 202211

REACTIONS (2)
  - Surgery [Unknown]
  - Respiratory syncytial virus infection [Recovered/Resolved]
